FAERS Safety Report 5791850-8 (Version None)
Quarter: 2008Q2

REPORT INFORMATION
  Report Type: 
  Country: None (occurrence: None)
  Receive Date: 20080625
  Receipt Date: 20080428
  Transmission Date: 20081010
  Serious: No
  Sender: FDA-Public Use
  Company Number: US-WYE-H03825708

PATIENT
  Age: 73 Year
  Sex: Female

DRUGS (1)
  1. TORISEL [Suspect]
     Indication: RENAL CELL CARCINOMA
     Dosage: 25 MG WEEKLY; TWELVE WEEKS AGO, INTRAVENOUS
     Route: 042
     Dates: start: 20080201

REACTIONS (1)
  - OEDEMA [None]
